FAERS Safety Report 5940888-6 (Version None)
Quarter: 2008Q4

REPORT INFORMATION
  Report Type: 
  Country: None (occurrence: None)
  Receive Date: 20081031
  Receipt Date: 20080611
  Transmission Date: 20090506
  Serious: Yes (Other)
  Sender: FDA-Public Use
  Company Number: 2008AP002913

PATIENT
  Sex: Female

DRUGS (4)
  1. PRAVASTATIN SODIUM [Suspect]
     Indication: HYPERCHOLESTEROLAEMIA
     Dosage: 20 MG; QD PO
     Route: 048
     Dates: start: 20080411
  2. ESOMEPRAZOLE MAGNESIUM [Concomitant]
  3. LEVOTHYROXINE SODIUM [Concomitant]
  4. TEMAZEPAM [Concomitant]

REACTIONS (3)
  - CHEILITIS [None]
  - LIP DRY [None]
  - LIP SWELLING [None]
